FAERS Safety Report 17813974 (Version 8)
Quarter: 2020Q3

REPORT INFORMATION
  Report Type: Report from Study
  Country: ES (occurrence: ES)
  Receive Date: 20200521
  Receipt Date: 20200819
  Transmission Date: 20201102
  Serious: Yes (Hospitalization, Disabling, Other)
  Sender: FDA-Public Use
  Company Number: ES-GILEAD-2020-0467263

PATIENT
  Age: 57 Year
  Sex: Male
  Weight: 79 kg

DRUGS (11)
  1. SEPTRIN [Concomitant]
     Active Substance: SULFAMETHOXAZOLE\TRIMETHOPRIM
  2. FLUDARABINE [Suspect]
     Active Substance: FLUDARABINE PHOSPHATE
     Indication: BONE MARROW CONDITIONING REGIMEN
     Route: 065
  3. KTE?X19 [Suspect]
     Active Substance: AXICABTAGENE CILOLEUCEL
     Indication: MANTLE CELL LYMPHOMA REFRACTORY
     Dosage: 1 DOSAGE FORM, ONCE; 2X10 E6 1 KG
     Route: 042
     Dates: start: 20200504, end: 20200504
  4. DEXMETHASONE [Suspect]
     Active Substance: DEXAMETHASONE
     Indication: CYTOKINE RELEASE SYNDROME
     Dosage: 10 MG, Q8H
     Route: 042
  5. DEXMETHASONE [Suspect]
     Active Substance: DEXAMETHASONE
     Dosage: TAPERING TO 4 MG/DAY
     Route: 042
  6. DEXMETHASONE [Suspect]
     Active Substance: DEXAMETHASONE
     Dosage: INCREASE TO 10 MG/6H
     Route: 042
  7. FLUCONAZOL [Concomitant]
     Active Substance: FLUCONAZOLE
  8. DEXMETHASONE [Suspect]
     Active Substance: DEXAMETHASONE
     Dosage: TAPERING
     Route: 042
     Dates: end: 20200518
  9. LEVOFLOXACIN. [Concomitant]
     Active Substance: LEVOFLOXACIN
  10. URSODIOL. [Concomitant]
     Active Substance: URSODIOL
  11. ACICLOVIR [Concomitant]
     Active Substance: ACYCLOVIR

REACTIONS (3)
  - Immune effector cell-associated neurotoxicity syndrome [Recovering/Resolving]
  - Human herpesvirus 6 encephalitis [Recovered/Resolved with Sequelae]
  - Cytokine release syndrome [Recovered/Resolved]

NARRATIVE: CASE EVENT DATE: 20200509
